FAERS Safety Report 23345878 (Version 1)
Quarter: 2023Q4

REPORT INFORMATION
  Report Type: Spontaneous
  Country: US (occurrence: None)
  Receive Date: 20231227
  Receipt Date: 20231227
  Transmission Date: 20240110
  Serious: Yes (Hospitalization)
  Sender: FDA-Public Use
  Company Number: None

PATIENT
  Age: 83 Year
  Weight: 86.2 kg

DRUGS (2)
  1. DARATUMUMAB [Suspect]
     Active Substance: DARATUMUMAB
     Dosage: FREQUENCY : MONTHLY;?
     Route: 058
     Dates: start: 20220629
  2. REVLIMID [Suspect]
     Active Substance: LENALIDOMIDE
     Indication: Plasma cell myeloma
     Dosage: OTHER FREQUENCY : 21/28 CYCLE;?
     Route: 048
     Dates: start: 20220629

REACTIONS (7)
  - Dizziness [None]
  - Balance disorder [None]
  - Fall [None]
  - Skin laceration [None]
  - Spinal osteoarthritis [None]
  - Vertebral lesion [None]
  - Pathological fracture [None]

NARRATIVE: CASE EVENT DATE: 20231225
